FAERS Safety Report 13652777 (Version 1)
Quarter: 2017Q2

REPORT INFORMATION
  Report Type: Spontaneous
  Country: US (occurrence: US)
  Receive Date: 20170614
  Receipt Date: 20170614
  Transmission Date: 20170830
  Serious: No
  Sender: FDA-Public Use
  Company Number: US-ROCHE-1403369

PATIENT
  Sex: Male

DRUGS (2)
  1. XELODA [Suspect]
     Active Substance: CAPECITABINE
     Indication: PRODUCT USED FOR UNKNOWN INDICATION
     Dosage: 14 DAYS ON?DOSE: 3 TABLETS
     Route: 065
     Dates: start: 20140307
  2. XELODA [Suspect]
     Active Substance: CAPECITABINE
     Dosage: DOSE: 2 TABLETS
     Route: 065

REACTIONS (2)
  - Diarrhoea [Unknown]
  - Peripheral swelling [Unknown]
